FAERS Safety Report 17518447 (Version 1)
Quarter: 2020Q1

REPORT INFORMATION
  Report Type: Spontaneous
  Country: US (occurrence: US)
  Receive Date: 20200310
  Receipt Date: 20200310
  Transmission Date: 20200409
  Serious: Yes (Hospitalization, Other)
  Sender: FDA-Public Use
  Company Number: US-PFIZER INC-2020101255

PATIENT
  Age: 84 Year
  Sex: Female
  Weight: 58.51 kg

DRUGS (10)
  1. BABY ASPIRIN [Concomitant]
     Active Substance: ASPIRIN
     Dosage: HALF OF DF OR LOW DOSE ASPIRIN WHICH IS 81 MG
  2. CORTISONE [Concomitant]
     Active Substance: CORTISONE
     Dosage: MONTHLY
  3. PREDNISONE. [Suspect]
     Active Substance: PREDNISONE
  4. METHOTREXATE SODIUM. [Suspect]
     Active Substance: METHOTREXATE SODIUM
  5. ZILRETTA [Concomitant]
     Active Substance: TRIAMCINOLONE ACETONIDE
     Indication: RHEUMATOID ARTHRITIS
  6. PREDNISOLONE ACETATE. [Concomitant]
     Active Substance: PREDNISOLONE ACETATE
  7. ZILRETTA [Concomitant]
     Active Substance: TRIAMCINOLONE ACETONIDE
     Indication: PAIN
     Dosage: EVERY 3 MONTHS
  8. VITAMINS NOS [Concomitant]
     Active Substance: VITAMINS
  9. XELJANZ XR [Suspect]
     Active Substance: TOFACITINIB CITRATE
     Indication: RHEUMATOID ARTHRITIS
     Dosage: 11 MG, DAILY
     Route: 048
  10. LISINOPRIL. [Concomitant]
     Active Substance: LISINOPRIL
     Indication: HYPERTENSION
     Dosage: 2.5 MG, 1X/DAY

REACTIONS (9)
  - Cervical vertebral fracture [Unknown]
  - Fall [Unknown]
  - Cough [Unknown]
  - Oropharyngeal pain [Unknown]
  - Colitis [Unknown]
  - Oral candidiasis [Unknown]
  - Viral infection [Unknown]
  - Blindness [Unknown]
  - Anaemia [Unknown]
